FAERS Safety Report 7314809-8 (Version None)
Quarter: 2011Q1

REPORT INFORMATION
  Report Type: 
  Country: None (occurrence: None)
  Receive Date: 20110225
  Receipt Date: 20101217
  Transmission Date: 20110831
  Serious: No
  Sender: FDA-Public Use
  Company Number: US-MYLANLABS-2010S1023057

PATIENT
  Age: 15 Year
  Sex: Female

DRUGS (3)
  1. CLARAVIS [Suspect]
     Indication: ACNE
     Route: 048
     Dates: start: 20100801, end: 20100801
  2. AMNESTEEM [Suspect]
     Indication: ACNE
     Route: 048
     Dates: start: 20101101, end: 20101215
  3. CLARAVIS [Suspect]
     Route: 048
     Dates: start: 20100901, end: 20101101

REACTIONS (4)
  - DEPRESSION [None]
  - EDUCATIONAL PROBLEM [None]
  - DEPRESSED MOOD [None]
  - FATIGUE [None]
